FAERS Safety Report 8134852-9 (Version None)
Quarter: 2012Q1

REPORT INFORMATION
  Report Type: 
  Country: None (occurrence: None)
  Receive Date: 20120214
  Receipt Date: 20120206
  Transmission Date: 20120608
  Serious: Yes (Other)
  Sender: FDA-Public Use
  Company Number: FR-TEVA-321409ISR

PATIENT
  Sex: Female

DRUGS (2)
  1. VINORELBINE [Suspect]
     Indication: BREAST CANCER
     Dosage: 1.1905 MG/M2;
     Route: 065
  2. FLUOROURACIL [Suspect]
     Indication: BREAST CANCER
     Dosage: 23.8095 MG/M2;

REACTIONS (1)
  - SKIN TOXICITY [None]
